FAERS Safety Report 9652489 (Version 2)
Quarter: 2013Q4

REPORT INFORMATION
  Report Type: Spontaneous
  Country: AU (occurrence: AU)
  Receive Date: 20131029
  Receipt Date: 20131029
  Transmission Date: 20140711
  Serious: Yes (Hospitalization)
  Sender: FDA-Public Use
  Company Number: AU-ABBVIE-13X-008-1141607-00

PATIENT
  Age: 32 Year
  Sex: Female

DRUGS (13)
  1. EPILIM [Suspect]
     Indication: EPILEPSY
     Dates: start: 20120321
  2. EPILIM [Suspect]
     Route: 048
     Dates: start: 201207
  3. KEPPRA [Suspect]
     Indication: PROPHYLAXIS
  4. MINIRIN [Suspect]
     Indication: DIABETES INSIPIDUS
     Route: 045
  5. PROGESTERONE [Concomitant]
     Indication: PRODUCT USED FOR UNKNOWN INDICATION
  6. ESTROGEN NOS [Concomitant]
     Indication: PRODUCT USED FOR UNKNOWN INDICATION
  7. CORTISONE ACETATE [Concomitant]
     Indication: PRODUCT USED FOR UNKNOWN INDICATION
  8. THYROXIN [Concomitant]
     Indication: PRODUCT USED FOR UNKNOWN INDICATION
  9. CALTRATE [Concomitant]
     Indication: PRODUCT USED FOR UNKNOWN INDICATION
  10. ALL OTHER THERAPEUTIC PRODUCTS [Concomitant]
     Indication: PRODUCT USED FOR UNKNOWN INDICATION
  11. HYDROCORTISONE [Concomitant]
     Indication: PRODUCT USED FOR UNKNOWN INDICATION
  12. ALL OTHER THERAPEUTIC PRODUCTS [Concomitant]
     Indication: PRODUCT USED FOR UNKNOWN INDICATION
  13. MICROGYNON [Concomitant]
     Indication: PRODUCT USED FOR UNKNOWN INDICATION

REACTIONS (13)
  - Convulsion [Unknown]
  - Fluid retention [Unknown]
  - Drug interaction [Unknown]
  - Irritability [Unknown]
  - Weight increased [Unknown]
  - Hunger [Unknown]
  - Speech disorder [Unknown]
  - Amnesia [Unknown]
  - Negative thoughts [Unknown]
  - Depression [Unknown]
  - Somnolence [Unknown]
  - Fatigue [Unknown]
  - Anxiety [Unknown]
